FAERS Safety Report 13652398 (Version 3)
Quarter: 2017Q4

REPORT INFORMATION
  Report Type: Spontaneous
  Country: US (occurrence: US)
  Receive Date: 20170614
  Receipt Date: 20171227
  Transmission Date: 20180320
  Serious: No
  Sender: FDA-Public Use
  Company Number: US-PFIZER INC-2017258722

PATIENT
  Age: 74 Year
  Sex: Female
  Weight: 89 kg

DRUGS (2)
  1. GABAPENTIN. [Suspect]
     Active Substance: GABAPENTIN
     Dosage: 600 MG, 3X/DAY
     Dates: end: 201612
  2. GABAPENTIN. [Suspect]
     Active Substance: GABAPENTIN
     Indication: NEUROPATHY PERIPHERAL
     Dosage: 100 MG, 3X/DAY

REACTIONS (1)
  - Drug ineffective [Unknown]
